FAERS Safety Report 21222014 (Version 3)
Quarter: 2023Q4

REPORT INFORMATION
  Report Type: Spontaneous
  Country: FR (occurrence: FR)
  Receive Date: 20220817
  Receipt Date: 20231027
  Transmission Date: 20240110
  Serious: Yes (Death, Hospitalization, Other)
  Sender: FDA-Public Use
  Company Number: FR-NOVARTISPH-NVSC2022FR185453

PATIENT
  Age: 54 Year
  Sex: Male
  Weight: 106 kg

DRUGS (15)
  1. CYCLOSPORINE [Suspect]
     Active Substance: CYCLOSPORINE
     Indication: Product used for unknown indication
     Dosage: 25MGX2/J
     Route: 048
     Dates: start: 20220517, end: 20220524
  2. FLUDARABINE [Concomitant]
     Active Substance: FLUDARABINE PHOSPHATE
     Indication: Product used for unknown indication
     Dosage: 40 MG/M2
     Route: 042
     Dates: start: 20220219, end: 20220222
  3. BUSULFAN [Concomitant]
     Active Substance: BUSULFAN
     Indication: Product used for unknown indication
     Dosage: 3.2 MG/KG
     Route: 042
     Dates: start: 20220219, end: 20220220
  4. THIOTEPA [Concomitant]
     Active Substance: THIOTEPA
     Indication: Product used for unknown indication
     Dosage: 5 MG/KG
     Route: 042
     Dates: start: 20220218, end: 20220218
  5. CYCLOPHOSPHAMIDE [Concomitant]
     Active Substance: CYCLOPHOSPHAMIDE
     Indication: Product used for unknown indication
     Dosage: 50 MG/KG
     Route: 042
     Dates: start: 20220227, end: 20220228
  6. MYCOPHENOLATE MOFETIL [Concomitant]
     Active Substance: MYCOPHENOLATE MOFETIL
     Indication: Product used for unknown indication
     Dosage: 500MGX2/J
     Route: 048
     Dates: start: 20220405, end: 20220419
  7. ELTROMBOPAG OLAMINE [Concomitant]
     Active Substance: ELTROMBOPAG OLAMINE
     Indication: Product used for unknown indication
     Dosage: 150 MG, QD
     Route: 065
  8. EXJADE [Concomitant]
     Active Substance: DEFERASIROX
     Indication: Product used for unknown indication
     Dosage: 180 MG, QD
     Route: 065
  9. VORICONAZOLE [Concomitant]
     Active Substance: VORICONAZOLE
     Indication: Product used for unknown indication
     Dosage: 400 MG, BID (MORNING AND EVENING)
     Route: 065
  10. VALACYCLOVIR HYDROCHLORIDE [Concomitant]
     Active Substance: VALACYCLOVIR HYDROCHLORIDE
     Indication: Product used for unknown indication
     Dosage: 500 MG, BID (MORNING AND EVENING)
     Route: 065
  11. ATOVAQUONE [Concomitant]
     Active Substance: ATOVAQUONE
     Indication: Product used for unknown indication
     Dosage: 750 MG, BID (MORNING AND EVENING)
     Route: 065
  12. ATOVAQUONE [Concomitant]
     Active Substance: ATOVAQUONE
     Dosage: 750 MG, BID (MORNING AND EVENING)
     Route: 065
  13. PANTOPRAZOLE [Concomitant]
     Active Substance: PANTOPRAZOLE
     Indication: Product used for unknown indication
     Dosage: 40 MG
     Route: 065
  14. LENOGRASTIM [Concomitant]
     Active Substance: LENOGRASTIM
     Indication: Product used for unknown indication
     Dosage: 33,6 MU, QD
     Route: 065
  15. CHOLECALCIFEROL [Concomitant]
     Active Substance: CHOLECALCIFEROL
     Indication: Product used for unknown indication
     Dosage: 5000 IU, QMO
     Route: 065

REACTIONS (12)
  - Cardiac failure [Fatal]
  - Acute coronary syndrome [Fatal]
  - Bronchopulmonary aspergillosis [Unknown]
  - Pyrexia [Unknown]
  - Cough [Unknown]
  - Staphylococcal infection [Recovered/Resolved]
  - Inflammation [Unknown]
  - Hyperthermia [Unknown]
  - Dyspnoea [Unknown]
  - Pancytopenia [Unknown]
  - Thrombocytopenia [Unknown]
  - Chimerism [Unknown]

NARRATIVE: CASE EVENT DATE: 20220531
